FAERS Safety Report 5276306-3 (Version None)
Quarter: 2007Q1

REPORT INFORMATION
  Report Type: 
  Country: None (occurrence: None)
  Receive Date: 20070326
  Receipt Date: 20070322
  Transmission Date: 20070707
  Serious: Yes (Hospitalization)
  Sender: FDA-Public Use
  Company Number: JP-ABBOTT-07P-087-0360102-00

PATIENT
  Sex: Male

DRUGS (24)
  1. KALETRA [Suspect]
     Indication: HIV INFECTION
     Route: 048
     Dates: start: 20050613
  2. GANCICLOVIR [Suspect]
     Indication: OESOPHAGEAL ULCER
     Route: 042
     Dates: start: 20050601, end: 20050622
  3. GANCICLOVIR [Suspect]
     Indication: CYTOMEGALOVIRUS INFECTION
  4. GANCICLOVIR [Suspect]
     Indication: GASTRIC ULCER
  5. VALGANCICLOVIR HCL [Suspect]
     Indication: CYTOMEGALOVIRUS INFECTION
     Route: 048
     Dates: start: 20050530, end: 20050531
  6. VALGANCICLOVIR HCL [Suspect]
     Indication: GASTRIC ULCER
     Route: 048
     Dates: start: 20050623, end: 20050707
  7. VALGANCICLOVIR HCL [Suspect]
     Indication: OESOPHAGEAL ULCER
     Route: 048
     Dates: start: 20050623, end: 20050707
  8. STAVUDINE [Suspect]
     Indication: HIV INFECTION
     Route: 048
     Dates: start: 20050613
  9. LAMIVUDINE [Concomitant]
     Indication: HIV INFECTION
     Route: 048
     Dates: start: 20050613
  10. GANCICLOVIR [Concomitant]
     Route: 042
     Dates: start: 20050601, end: 20050622
  11. GANCICLOVIR [Concomitant]
  12. GANCICLOVIR [Concomitant]
  13. AZITHROMYCIN [Concomitant]
     Indication: OPPORTUNISTIC INFECTION PROPHYLAXIS
     Route: 048
     Dates: start: 20050418, end: 20060123
  14. SULFAMETHOXAZOLE/TRIMETHOPRIME [Concomitant]
     Indication: ANTIFUNGAL PROPHYLAXIS
     Route: 048
     Dates: start: 20050325
  15. TEMOCAPRIL HYDROCHLORIDE [Concomitant]
     Indication: HYPERTENSION
     Route: 048
  16. ASPIRIN [Concomitant]
     Indication: CEREBRAL INFARCTION
     Route: 048
  17. RABEPRAZOLE SODIUM [Concomitant]
     Indication: OESOPHAGEAL ULCER
     Route: 048
  18. RABEPRAZOLE SODIUM [Concomitant]
     Indication: GASTRIC ULCER
  19. SUCRALFATE HYDRATE [Concomitant]
     Indication: OESOPHAGEAL ULCER
     Route: 048
  20. SUCRALFATE HYDRATE [Concomitant]
     Indication: GASTRIC ULCER
  21. ALUDROX ^WYETH^ [Concomitant]
     Indication: OESOPHAGEAL ULCER
     Route: 048
  22. ALUDROX ^WYETH^ [Concomitant]
     Indication: GASTRIC ULCER
  23. ETIZOLAM [Concomitant]
     Indication: INSOMNIA
     Route: 048
  24. ONDANSETRON [Concomitant]
     Indication: PROPHYLAXIS OF NAUSEA AND VOMITING
     Route: 042
     Dates: start: 20050723, end: 20050901

REACTIONS (4)
  - HYPERTRIGLYCERIDAEMIA [None]
  - IMMUNE RECONSTITUTION SYNDROME [None]
  - KAPOSI'S SARCOMA [None]
  - WHITE BLOOD CELL COUNT DECREASED [None]
